FAERS Safety Report 15526245 (Version 2)
Quarter: 2019Q4

REPORT INFORMATION
  Report Type: Spontaneous
  Country: US (occurrence: US)
  Receive Date: 20181018
  Receipt Date: 20191119
  Transmission Date: 20200122
  Serious: Yes (Other)
  Sender: FDA-Public Use
  Company Number: US-ELI_LILLY_AND_COMPANY-US201810006176

PATIENT
  Age: 73 Year
  Sex: Male

DRUGS (13)
  1. VIAGRA [Suspect]
     Active Substance: SILDENAFIL CITRATE
     Indication: ERECTILE DYSFUNCTION
     Dosage: 100 MG, PRN
     Route: 065
     Dates: start: 20050204, end: 200808
  2. FLOMAX RELIEF [Concomitant]
     Active Substance: TAMSULOSIN HYDROCHLORIDE
     Indication: BENIGN PROSTATIC HYPERPLASIA
     Dosage: 0.4 MG, DAILY
     Route: 065
     Dates: start: 20091202
  3. CIALIS [Suspect]
     Active Substance: TADALAFIL
     Indication: ERECTILE DYSFUNCTION
     Dosage: UNK, UNKNOWN
     Route: 065
     Dates: start: 20080220, end: 201011
  4. TESTIM [Concomitant]
     Active Substance: TESTOSTERONE
     Indication: BENIGN PROSTATIC HYPERPLASIA
     Dosage: 50 MG, UNKNOWN
     Route: 065
     Dates: start: 20101018, end: 201704
  5. DUTASTERIDE;TAMSULOSIN [Concomitant]
     Indication: BENIGN PROSTATIC HYPERPLASIA
     Dosage: 0.5 MG, DAILY
     Route: 065
     Dates: start: 20160523, end: 201805
  6. JALYN [Concomitant]
     Active Substance: DUTASTERIDE\TAMSULOSIN HYDROCHLORIDE
     Indication: BENIGN PROSTATIC HYPERPLASIA
  7. STENDRA [Concomitant]
     Active Substance: AVANAFIL
     Indication: ERECTILE DYSFUNCTION
     Dosage: UNK, UNKNOWN
     Route: 065
     Dates: start: 20140424, end: 201612
  8. JALYN [Concomitant]
     Active Substance: DUTASTERIDE\TAMSULOSIN HYDROCHLORIDE
     Indication: ERECTILE DYSFUNCTION
     Dosage: 0.5 MG, DAILY
     Route: 065
     Dates: start: 20100915, end: 201701
  9. CIALIS [Suspect]
     Active Substance: TADALAFIL
     Dosage: 5 MG
     Route: 065
     Dates: start: 20130311, end: 201403
  10. VIAGRA [Suspect]
     Active Substance: SILDENAFIL CITRATE
     Indication: BENIGN PROSTATIC HYPERPLASIA
     Dosage: 20 MG, PRN
     Route: 065
     Dates: start: 20080220, end: 201011
  11. VIAGRA [Suspect]
     Active Substance: SILDENAFIL CITRATE
     Dosage: 100 MG, PRN
     Route: 065
     Dates: start: 20101117, end: 201508
  12. JALYN [Concomitant]
     Active Substance: DUTASTERIDE\TAMSULOSIN HYDROCHLORIDE
     Indication: LOWER URINARY TRACT SYMPTOMS
  13. CIALIS [Suspect]
     Active Substance: TADALAFIL
     Indication: BENIGN PROSTATIC HYPERPLASIA
     Dosage: UNK
     Route: 065
     Dates: start: 201002, end: 201003

REACTIONS (5)
  - Malignant melanoma in situ [Unknown]
  - Diverticulitis [Not Recovered/Not Resolved]
  - Calculus bladder [Recovered/Resolved]
  - Nephrolithiasis [Not Recovered/Not Resolved]
  - Ureterolithiasis [Not Recovered/Not Resolved]

NARRATIVE: CASE EVENT DATE: 20140428
